FAERS Safety Report 8776069 (Version 1)
Quarter: 2012Q4

REPORT INFORMATION
  Report Type: 
  Country: GB (occurrence: GB)
  Receive Date: 20120910
  Receipt Date: 20120910
  Transmission Date: 20130627
  Serious: Yes (Other)
  Sender: FDA-Public Use
  Company Number: GB-BAYER-2012-093822

PATIENT
  Age: 82 Year
  Sex: Female

DRUGS (1)
  1. CANESTEN 200 MG PESSARY [Suspect]
     Dosage: UNK
     Dates: start: 20120907

REACTIONS (2)
  - Vaginal haemorrhage [None]
  - Vaginal discharge [None]
